FAERS Safety Report 5913708-3 (Version None)
Quarter: 2008Q4

REPORT INFORMATION
  Report Type: 
  Country: None (occurrence: None)
  Receive Date: 20081009
  Receipt Date: 20080925
  Transmission Date: 20090506
  Serious: Yes (Hospitalization, Other)
  Sender: FDA-Public Use
  Company Number: CA-GENENTECH-268690

PATIENT
  Sex: Male

DRUGS (4)
  1. XOLAIR [Suspect]
     Indication: ASTHMA
     Dosage: 375 MG, 2/WEEK
     Route: 058
     Dates: start: 20080725
  2. CHOLESTEROL LOWERING AGENTS [Concomitant]
     Indication: BLOOD CHOLESTEROL INCREASED
  3. HYPERTENSIVE MEDICATION (UNK INGREDIENTS) [Concomitant]
     Indication: HYPERTENSION
  4. PSYCHOPHARMACEUTICALS NOS [Concomitant]
     Indication: DRUG USE FOR UNKNOWN INDICATION

REACTIONS (2)
  - LOSS OF CONSCIOUSNESS [None]
  - NASOPHARYNGITIS [None]
